FAERS Safety Report 16223723 (Version 1)
Quarter: 2019Q2

REPORT INFORMATION
  Report Type: Spontaneous
  Country: US (occurrence: US)
  Receive Date: 20190318
  Receipt Date: 20190318
  Transmission Date: 20190711
  Serious: No
  Sender: FDA-Public Use
  Company Number: None

PATIENT
  Sex: Male

DRUGS (1)
  1. BIKTARVY [Suspect]
     Active Substance: BICTEGRAVIR SODIUM\EMTRICITABINE\TENOFOVIR ALAFENAMIDE FUMARATE
     Indication: HIV INFECTION
     Dosage: 50/200/25 MG; QD; PO?
     Route: 048
     Dates: start: 20181121

REACTIONS (4)
  - Sleep paralysis [None]
  - Sleep terror [None]
  - Abnormal dreams [None]
  - Hyperhidrosis [None]
